FAERS Safety Report 6638394-9 (Version None)
Quarter: 2010Q1

REPORT INFORMATION
  Report Type: 
  Country: None (occurrence: None)
  Receive Date: 20100317
  Receipt Date: 20100308
  Transmission Date: 20100710
  Serious: Yes (Hospitalization)
  Sender: FDA-Public Use
  Company Number: B0638221A

PATIENT
  Sex: Male

DRUGS (3)
  1. LAMICTAL CD [Suspect]
     Dosage: 50MG TWICE PER DAY
     Route: 048
     Dates: start: 20091210, end: 20091222
  2. DEPAKOTE [Suspect]
     Route: 048
     Dates: start: 20080101
  3. LOXAPAC [Concomitant]

REACTIONS (9)
  - CONFUSIONAL STATE [None]
  - DRUG INTERACTION [None]
  - HEPATOCELLULAR INJURY [None]
  - HYPERAMMONAEMIA [None]
  - LEUKOPENIA [None]
  - PLATELET COUNT INCREASED [None]
  - PURPURA [None]
  - RASH [None]
  - STUPOR [None]
